FAERS Safety Report 10861795 (Version 1)
Quarter: 2015Q1

REPORT INFORMATION
  Report Type: Spontaneous
  Country: SE (occurrence: SE)
  Receive Date: 20150224
  Receipt Date: 20150224
  Transmission Date: 20150721
  Serious: Yes (Hospitalization)
  Sender: FDA-Public Use
  Company Number: SE-PFIZER INC-2015065928

PATIENT
  Age: 64 Year
  Sex: Female

DRUGS (9)
  1. MORPHINE SULFATE. [Suspect]
     Active Substance: MORPHINE SULFATE
     Indication: BACK PAIN
     Dosage: UNK
     Dates: start: 20141123
  2. ATARAX [Concomitant]
     Active Substance: HYDROXYZINE\HYDROXYZINE HYDROCHLORIDE
     Dosage: UNK, AS NEEDED
  3. KETALAR [Suspect]
     Active Substance: KETAMINE HYDROCHLORIDE
     Indication: BACK PAIN
     Dosage: UNK
     Dates: start: 20141123
  4. CANDESARTAN [Concomitant]
     Active Substance: CANDESARTAN
  5. FURIX [Concomitant]
     Active Substance: FUROSEMIDE
  6. NITROLINGUAL [Concomitant]
     Active Substance: NITROGLYCERIN
  7. METOPROLOL [Concomitant]
     Active Substance: METOPROLOL
  8. ONDANSETRON [Concomitant]
     Active Substance: ONDANSETRON
  9. BISOPROLOL [Concomitant]
     Active Substance: BISOPROLOL

REACTIONS (6)
  - General physical condition abnormal [Recovered/Resolved]
  - Vomiting [Recovered/Resolved]
  - Motor dysfunction [Recovered/Resolved]
  - Dysphagia [Recovered/Resolved]
  - Depressed level of consciousness [Recovered/Resolved]
  - Nausea [Recovered/Resolved]

NARRATIVE: CASE EVENT DATE: 20141123
